FAERS Safety Report 5766997-2 (Version None)
Quarter: 2008Q2

REPORT INFORMATION
  Report Type: 
  Country: None (occurrence: None)
  Receive Date: 20080612
  Receipt Date: 20080609
  Transmission Date: 20081010
  Serious: Yes (Death)
  Sender: FDA-Public Use
  Company Number: US-ABBOTT-08P-163-0456092-00

PATIENT
  Sex: Male
  Weight: 68.1 kg

DRUGS (7)
  1. HUMIRA [Suspect]
     Indication: PSORIATIC ARTHROPATHY
     Route: 058
     Dates: start: 20080401, end: 20080526
  2. HUMIRA [Suspect]
     Indication: PSORIASIS
  3. METHOTREXATE [Concomitant]
     Indication: PSORIATIC ARTHROPATHY
     Route: 048
     Dates: end: 20080526
  4. METHOTREXATE [Concomitant]
     Indication: PSORIASIS
  5. TRAMADOL HCL [Concomitant]
     Indication: PAIN
     Route: 048
     Dates: start: 20080206, end: 20080526
  6. NAPROXEN [Concomitant]
     Indication: PAIN
     Route: 048
     Dates: end: 20080526
  7. TEMSEDIRAL CREAM [Concomitant]
     Indication: PSORIASIS
     Route: 061
     Dates: end: 20080526

REACTIONS (1)
  - COMPLETED SUICIDE [None]
